FAERS Safety Report 5311117-1 (Version None)
Quarter: 2007Q2

REPORT INFORMATION
  Report Type: 
  Country: None (occurrence: None)
  Receive Date: 20070430
  Receipt Date: 20070420
  Transmission Date: 20071010
  Serious: Yes (Hospitalization)
  Sender: FDA-Public Use
  Company Number: BR-SANOFI-SYNTHELABO-D01200701561

PATIENT
  Sex: Female
  Weight: 56 kg

DRUGS (13)
  1. DECADRON [Concomitant]
     Indication: PROPHYLAXIS
     Route: 048
     Dates: start: 20070221, end: 20070224
  2. NAUSEDRON [Concomitant]
     Indication: PROPHYLAXIS
     Dosage: 20 DOSES
     Route: 046
     Dates: start: 20070221
  3. OMEPRAZOLE [Concomitant]
     Indication: GASTRITIS PROPHYLAXIS
     Dosage: EVERY MORNING
     Route: 048
     Dates: start: 20070205, end: 20070305
  4. LISADOR [Concomitant]
     Indication: PAIN
     Dosage: QID PRN
     Route: 048
     Dates: start: 20070215
  5. OXALIPLATIN [Suspect]
     Route: 042
     Dates: start: 20070221, end: 20070221
  6. SR57746 OR PLACEBO [Suspect]
     Indication: NEUROLOGICAL SYMPTOM
     Route: 048
     Dates: start: 20070221, end: 20070304
  7. LEXOTAN [Concomitant]
     Dates: start: 20070215, end: 20070305
  8. MEGESTAT [Concomitant]
     Dates: start: 20070215, end: 20070305
  9. DIPYRONE TAB [Concomitant]
     Dates: start: 20070215, end: 20070305
  10. BROMOPRIDE [Concomitant]
     Dates: start: 20070221, end: 20070225
  11. LEUCOVORIN CALCIUM [Suspect]
     Route: 042
     Dates: start: 20070228, end: 20070228
  12. FLUOROURACIL [Suspect]
     Dosage: 400 MG/M?, IV BOLUS D1+D2 FOLLOWED BY 5-FU 2400 MG/M? OVER 46-HOUR CONTINUOUS INFUSION.
     Route: 042
     Dates: start: 20070221, end: 20070223
  13. PROMETHAZINE [Concomitant]
     Dates: start: 20070215, end: 20070305

REACTIONS (2)
  - DIARRHOEA [None]
  - FEBRILE NEUTROPENIA [None]
